FAERS Safety Report 11294398 (Version 1)
Quarter: 2015Q3

REPORT INFORMATION
  Report Type: Spontaneous
  Country: US (occurrence: US)
  Receive Date: 20150722
  Receipt Date: 20150722
  Transmission Date: 20151125
  Serious: No
  Sender: FDA-Public Use
  Company Number: US-ELI_LILLY_AND_COMPANY-US200806006629

PATIENT
  Age: 75 Year
  Sex: Female

DRUGS (3)
  1. MULTIVITAMIN [Concomitant]
     Active Substance: VITAMINS
  2. CALTRATE +D [Concomitant]
     Dosage: 1500 MG, UNK
  3. EVISTA [Suspect]
     Active Substance: RALOXIFENE HYDROCHLORIDE
     Indication: ARTHRITIS
     Dosage: 60 MG, DAILY (1/D)
     Dates: start: 20080620, end: 20080626

REACTIONS (3)
  - Vulvovaginal burning sensation [Recovered/Resolved]
  - Hot flush [Not Recovered/Not Resolved]
  - Vulvovaginal pruritus [Recovered/Resolved]

NARRATIVE: CASE EVENT DATE: 200806
